FAERS Safety Report 7063047-5 (Version None)
Quarter: 2010Q4

REPORT INFORMATION
  Report Type: 
  Country: None (occurrence: None)
  Receive Date: 20101026
  Receipt Date: 20100426
  Transmission Date: 20110411
  Serious: No
  Sender: FDA-Public Use
  Company Number: US-PFIZER INC-2010053211

PATIENT
  Sex: Female
  Weight: 76.6 kg

DRUGS (1)
  1. LIPITOR [Suspect]
     Indication: ARTERIAL OCCLUSIVE DISEASE
     Dosage: 10 MG, DAILY
     Route: 048
     Dates: start: 20100201

REACTIONS (1)
  - SINUSITIS [None]
